FAERS Safety Report 15458867 (Version 1)
Quarter: 2018Q4

REPORT INFORMATION
  Report Type: Spontaneous
  Country: US (occurrence: US)
  Receive Date: 20181003
  Receipt Date: 20181003
  Transmission Date: 20190204
  Serious: No
  Sender: FDA-Public Use
  Company Number: US-SA-2018SA020456

PATIENT
  Age: 51 Year
  Sex: Female

DRUGS (8)
  1. CLONAZEPAM. [Concomitant]
     Active Substance: CLONAZEPAM
     Dosage: UNK UNK,UNK
     Route: 065
  2. AUBAGIO [Suspect]
     Active Substance: TERIFLUNOMIDE
     Dosage: 14 MG,QD
     Route: 048
     Dates: start: 20170726
  3. IBANDRONATE [Concomitant]
     Active Substance: IBANDRONATE SODIUM
     Dosage: UNK UNK,UNK
     Route: 065
  4. BACLOFEN. [Concomitant]
     Active Substance: BACLOFEN
     Dosage: UNK UNK,UNK
     Route: 065
  5. AUBAGIO [Suspect]
     Active Substance: TERIFLUNOMIDE
     Dosage: 14 MG,QD
     Route: 048
  6. AUBAGIO [Suspect]
     Active Substance: TERIFLUNOMIDE
     Indication: MULTIPLE SCLEROSIS
     Dosage: 14 MG,QD
     Route: 048
     Dates: start: 20170726
  7. AMPYRA [Suspect]
     Active Substance: DALFAMPRIDINE
     Indication: MULTIPLE SCLEROSIS
     Dosage: 10 MG,BID
     Route: 065
     Dates: start: 20130725
  8. TRAMADOL. [Concomitant]
     Active Substance: TRAMADOL
     Dosage: UNK UNK,UNK
     Route: 065

REACTIONS (4)
  - Bronchitis [Unknown]
  - Fatigue [Unknown]
  - Memory impairment [Unknown]
  - Product dose omission [Unknown]
